FAERS Safety Report 13739501 (Version 1)
Quarter: 2017Q3

REPORT INFORMATION
  Report Type: Spontaneous
  Country: BE (occurrence: BE)
  Receive Date: 20170710
  Receipt Date: 20170710
  Transmission Date: 20171127
  Serious: Yes (Hospitalization)
  Sender: FDA-Public Use
  Company Number: PHHY2017BE096610

PATIENT
  Age: 84 Year

DRUGS (2)
  1. PHENPROCOUMON [Concomitant]
     Active Substance: PHENPROCOUMON
     Indication: ATRIAL FIBRILLATION
     Route: 065
  2. AMIODARONE [Suspect]
     Active Substance: AMIODARONE
     Indication: ATRIAL FIBRILLATION
     Dosage: 200 MG, QD
     Route: 065

REACTIONS (10)
  - Pulmonary toxicity [Recovered/Resolved]
  - Hypertension [Unknown]
  - Electrocardiogram QT prolonged [Unknown]
  - Oxygen saturation decreased [Recovered/Resolved]
  - Pulmonary hypertension [Unknown]
  - Dyspnoea [Recovered/Resolved]
  - Sinus tachycardia [Unknown]
  - Bronchiectasis [Recovered/Resolved]
  - Cough [Recovered/Resolved]
  - Pleural effusion [Recovered/Resolved]
